FAERS Safety Report 10548409 (Version 1)
Quarter: 2014Q4

REPORT INFORMATION
  Report Type: Spontaneous
  Country: US (occurrence: None)
  Receive Date: 20141024
  Receipt Date: 20141024
  Transmission Date: 20150529
  Serious: No
  Sender: FDA-Public Use
  Company Number: US-ALSI-201400194

PATIENT
  Age: 17 Year
  Sex: Male

DRUGS (1)
  1. NITROUS OXIDE. [Suspect]
     Active Substance: NITROUS OXIDE
     Indication: ANALGESIC THERAPY

REACTIONS (4)
  - Confusional state [None]
  - Depressed mood [None]
  - Euphoric mood [None]
  - Somnolence [None]
